FAERS Safety Report 18057029 (Version 1)
Quarter: 2020Q3

REPORT INFORMATION
  Report Type: Spontaneous
  Country: US (occurrence: US)
  Receive Date: 20200722
  Receipt Date: 20200722
  Transmission Date: 20201103
  Serious: No
  Sender: FDA-Public Use
  Company Number: US-DERMIRA, INC.-US-2020DER000109

PATIENT
  Age: 20 Year
  Sex: Female
  Weight: 58.96 kg

DRUGS (5)
  1. ROBINUL [Suspect]
     Active Substance: GLYCOPYRROLATE
     Dosage: 1 MG, UNK
     Route: 048
     Dates: start: 2019, end: 201904
  2. QBREXZA [Suspect]
     Active Substance: GLYCOPYRRONIUM TOSYLATE
     Indication: HYPERHIDROSIS
     Dosage: UNK, QD
     Route: 061
     Dates: start: 201904
  3. ZOLOFT [Concomitant]
     Active Substance: SERTRALINE HYDROCHLORIDE
     Indication: ANXIETY
     Dosage: 1 DF, QD
     Route: 048
     Dates: start: 2017
  4. ROBINUL [Suspect]
     Active Substance: GLYCOPYRROLATE
     Indication: HYPERHIDROSIS
     Dosage: 3 MG, TID
     Route: 048
     Dates: start: 201903, end: 2019
  5. ROBINUL [Suspect]
     Active Substance: GLYCOPYRROLATE
     Dosage: 2 MG, UNK
     Route: 048
     Dates: start: 2019, end: 2019

REACTIONS (5)
  - Dry mouth [Recovered/Resolved]
  - Middle insomnia [Recovered/Resolved]
  - Dry throat [Recovered/Resolved]
  - Off label use [Unknown]
  - Oropharyngeal pain [Recovered/Resolved]

NARRATIVE: CASE EVENT DATE: 201904
